FAERS Safety Report 13882630 (Version 4)
Quarter: 2017Q3

REPORT INFORMATION
  Report Type: Report from Study
  Country: BR (occurrence: BR)
  Receive Date: 20170818
  Receipt Date: 20170906
  Transmission Date: 20171127
  Serious: Yes (Other)
  Sender: FDA-Public Use
  Company Number: PHHY2017BR121939

PATIENT
  Age: 67 Year
  Sex: Male
  Weight: 74 kg

DRUGS (7)
  1. OCUPRESS [Suspect]
     Active Substance: CARTEOLOL HYDROCHLORIDE
     Indication: GLAUCOMA
     Route: 065
  2. OCUPRESS [Suspect]
     Active Substance: CARTEOLOL HYDROCHLORIDE
     Dosage: 1 DRP, Q12H IN BOTH EYES
     Route: 065
     Dates: start: 20170720
  3. SYSTANE ULTRA [Suspect]
     Active Substance: POLYETHYLENE GLYCOL 400\PROPYLENE GLYCOL
     Indication: GLAUCOMA
     Route: 065
  4. SYSTANE ULTRA [Suspect]
     Active Substance: POLYETHYLENE GLYCOL 400\PROPYLENE GLYCOL
     Indication: DRY EYE
     Dosage: 1 DRP, 2 TO 3 TIMES A DAY IN BOTH EYES
     Route: 065
     Dates: start: 20160720
  5. DUOTRAVATAN [BAC] [Suspect]
     Active Substance: TIMOLOL MALEATE\TRAVOPROST
     Indication: GLAUCOMA
     Route: 065
  6. DUOTRAVATAN [BAC] [Suspect]
     Active Substance: TIMOLOL MALEATE\TRAVOPROST
     Dosage: 1 DRP, QD (ONCE IN THE MORNING BOTH EYES)
     Route: 065
     Dates: start: 20170720
  7. DRENATAN [Concomitant]
     Active Substance: LATANOPROST
     Indication: PRODUCT USED FOR UNKNOWN INDICATION
     Route: 065

REACTIONS (5)
  - Optic nerve injury [Unknown]
  - Retinal haemorrhage [Unknown]
  - Optical coherence tomography abnormal [Unknown]
  - Optic disc disorder [Unknown]
  - Retinal vascular disorder [Unknown]

NARRATIVE: CASE EVENT DATE: 20160328
